FAERS Safety Report 17285836 (Version 9)
Quarter: 2020Q1

REPORT INFORMATION
  Report Type: Report from Study
  Country: None (occurrence: ES)
  Receive Date: 20200118
  Receipt Date: 20200312
  Transmission Date: 20200409
  Serious: Yes (Hospitalization, Other)
  Sender: FDA-Public Use
  Company Number: ES-ABBVIE-20K-144-3233382-00

PATIENT
  Age: 67 Year
  Sex: Male
  Weight: 85 kg

DRUGS (12)
  1. SINEMET [Concomitant]
     Active Substance: CARBIDOPA\LEVODOPA
     Indication: PRODUCT USED FOR UNKNOWN INDICATION
  2. DUODOPA [Suspect]
     Active Substance: CARBIDOPA\LEVODOPA
     Dosage: CONTINUOUS DOSE 3.4 ML/H
     Route: 050
     Dates: start: 202001, end: 202001
  3. DUODOPA [Suspect]
     Active Substance: CARBIDOPA\LEVODOPA
     Dosage: CONTINUOUS DOSE 3.8 ML/H
     Route: 050
     Dates: start: 202001, end: 20200131
  4. DUODOPA [Suspect]
     Active Substance: CARBIDOPA\LEVODOPA
     Dosage: CONTINUOUS DOSE 3 ML / H?DOSE DECREASED
     Route: 050
     Dates: start: 20200131, end: 20200131
  5. DUODOPA [Suspect]
     Active Substance: CARBIDOPA\LEVODOPA
     Indication: PARKINSON^S DISEASE
     Dosage: CONTINUOUS DOSE 3 ML/H
     Route: 050
     Dates: start: 20180913, end: 202001
  6. DUODOPA [Suspect]
     Active Substance: CARBIDOPA\LEVODOPA
     Route: 050
     Dates: end: 20200309
  7. ADIRO [Concomitant]
     Active Substance: ASPIRIN
     Indication: ANGINA PECTORIS
     Route: 048
     Dates: start: 2005
  8. SINEMET [Suspect]
     Active Substance: CARBIDOPA\LEVODOPA
     Indication: PARKINSON^S DISEASE
     Dosage: PER NIGHT
     Route: 048
  9. TAMSULOSIN [Concomitant]
     Active Substance: TAMSULOSIN
     Indication: PRODUCT USED FOR UNKNOWN INDICATION
     Route: 048
     Dates: end: 20200213
  10. SIMVASTATIN. [Concomitant]
     Active Substance: SIMVASTATIN
     Indication: BLOOD CHOLESTEROL
     Route: 048
  11. QUETIAPINE. [Concomitant]
     Active Substance: QUETIAPINE
     Indication: PRODUCT USED FOR UNKNOWN INDICATION
     Route: 048
     Dates: end: 20200213
  12. LOPRESSOR [Concomitant]
     Active Substance: METOPROLOL TARTRATE
     Indication: CARDIAC DISORDER
     Route: 048
     Dates: end: 20200213

REACTIONS (17)
  - Gastritis [Recovered/Resolved]
  - Syncope [Recovered/Resolved]
  - Urinary tract infection [Recovered/Resolved]
  - General physical health deterioration [Not Recovered/Not Resolved]
  - Duodenitis [Not Recovered/Not Resolved]
  - Freezing phenomenon [Not Recovered/Not Resolved]
  - Renal failure [Recovering/Resolving]
  - Constipation [Recovered/Resolved]
  - Intestinal pseudo-obstruction [Not Recovered/Not Resolved]
  - Hospitalisation [Recovering/Resolving]
  - Freezing phenomenon [Recovered/Resolved]
  - Intentional product misuse [Unknown]
  - Hypotension [Unknown]
  - Stoma site infection [Recovering/Resolving]
  - Gastritis [Not Recovered/Not Resolved]
  - Syncope [Recovered/Resolved]
  - On and off phenomenon [Not Recovered/Not Resolved]

NARRATIVE: CASE EVENT DATE: 201912
